FAERS Safety Report 17505644 (Version 3)
Quarter: 2020Q1

REPORT INFORMATION
  Report Type: Report from Study
  Country: CA (occurrence: CA)
  Receive Date: 20200306
  Receipt Date: 20200329
  Transmission Date: 20200409
  Serious: Yes (Other)
  Sender: FDA-Public Use
  Company Number: CA-UCBSA-2020009797

PATIENT
  Age: 40 Year
  Sex: Female

DRUGS (5)
  1. CERTOLIZUMAB PEGOL RA [Suspect]
     Active Substance: CERTOLIZUMAB PEGOL
     Dosage: 400 MILLIGRAM, EV 4 WEEKS
     Route: 058
  2. METHOTREXATE. [Concomitant]
     Active Substance: METHOTREXATE
     Indication: PRODUCT USED FOR UNKNOWN INDICATION
  3. NOVAMOXIN [Concomitant]
     Active Substance: AMOXICILLIN
     Indication: PNEUMONIA
     Dosage: 1000 MILLIGRAM, 3X/DAY (TID)
  4. CERTOLIZUMAB PEGOL RA [Suspect]
     Active Substance: CERTOLIZUMAB PEGOL
     Indication: RHEUMATOID ARTHRITIS
     Dosage: 400 MILLIGRAM, EV 2 WEEKS(QOW)
     Route: 058
     Dates: start: 20171115
  5. DOXYCYCLINE. [Concomitant]
     Active Substance: DOXYCYCLINE
     Indication: PNEUMONIA

REACTIONS (2)
  - Pneumonia [Recovered/Resolved]
  - Upper respiratory tract infection [Not Recovered/Not Resolved]

NARRATIVE: CASE EVENT DATE: 20200222
